FAERS Safety Report 7379320-7 (Version None)
Quarter: 2011Q1

REPORT INFORMATION
  Report Type: 
  Country: None (occurrence: None)
  Receive Date: 20110329
  Receipt Date: 20110322
  Transmission Date: 20110831
  Serious: No
  Sender: FDA-Public Use
  Company Number: US-BIOGENIDEC-2010BI034208

PATIENT
  Sex: Female

DRUGS (2)
  1. AVONEX [Concomitant]
     Indication: MULTIPLE SCLEROSIS
     Route: 030
  2. TYSABRI [Suspect]
     Indication: MULTIPLE SCLEROSIS
     Route: 042
     Dates: start: 20100628

REACTIONS (7)
  - HEADACHE [None]
  - FALL [None]
  - COAGULOPATHY [None]
  - PERIPHERAL COLDNESS [None]
  - CONTUSION [None]
  - MIGRAINE [None]
  - DRUG EFFECT DECREASED [None]
